FAERS Safety Report 7419490-5 (Version None)
Quarter: 2011Q1

REPORT INFORMATION
  Report Type: 
  Country: None (occurrence: None)
  Receive Date: 20110302
  Receipt Date: 20101028
  Transmission Date: 20110831
  Serious: No
  Sender: FDA-Public Use
  Company Number: 021327

PATIENT
  Sex: Female
  Weight: 54.9 kg

DRUGS (12)
  1. LOMOTIL /00034001/ [Concomitant]
  2. DARVOCET [Concomitant]
  3. PENTASA [Concomitant]
  4. DRISDOL [Concomitant]
  5. PREDNISONE [Concomitant]
  6. HYOSCYAMINE [Concomitant]
  7. XANAX [Concomitant]
  8. LACTINOL-E [Concomitant]
  9. CIMZIA [Suspect]
     Indication: CROHN'S DISEASE
     Dosage: (400 MG 1X/4 WEEKS SUBCUTANEOUS)
     Route: 058
     Dates: start: 20090818, end: 20100831
  10. LOVAZA [Concomitant]
  11. LEXAPRO [Concomitant]
  12. MERCAPTOPURINE [Concomitant]

REACTIONS (1)
  - OEDEMA PERIPHERAL [None]
